FAERS Safety Report 5499856-3 (Version None)
Quarter: 2007Q4

REPORT INFORMATION
  Report Type: 
  Country: None (occurrence: None)
  Receive Date: 20071026
  Receipt Date: 20071018
  Transmission Date: 20080405
  Serious: Yes (Death)
  Sender: FDA-Public Use
  Company Number: NO-ABBOTT-07P-122-0421182-00

PATIENT
  Age: 80 Year
  Sex: Female

DRUGS (3)
  1. VALPROIC ACID [Suspect]
     Indication: DRUG USE FOR UNKNOWN INDICATION
  2. TRETINOIN [Suspect]
     Indication: DRUG USE FOR UNKNOWN INDICATION
  3. AMINOPHYLLINE [Suspect]
     Indication: DRUG USE FOR UNKNOWN INDICATION

REACTIONS (4)
  - DISEASE PROGRESSION [None]
  - FATIGUE [None]
  - GASTROINTESTINAL DISORDER [None]
  - PLATELET COUNT INCREASED [None]
